FAERS Safety Report 12589589 (Version 2)
Quarter: 2016Q3

REPORT INFORMATION
  Report Type: Spontaneous
  Country: CA (occurrence: CA)
  Receive Date: 20160725
  Receipt Date: 20160823
  Transmission Date: 20161109
  Serious: Yes (Other)
  Sender: FDA-Public Use
  Company Number: CA-HQ SPECIALTY-CA-2016INT000600

PATIENT
  Age: 56 Year
  Sex: Male

DRUGS (16)
  1. METHOTREXATE SODIUM. [Suspect]
     Active Substance: METHOTREXATE SODIUM
     Indication: RHEUMATOID ARTHRITIS
     Dosage: 20 MG, UNK
     Route: 048
     Dates: start: 20150220
  2. XELJANZ [Suspect]
     Active Substance: TOFACITINIB CITRATE
     Dosage: 10 MG(5 MG, 2 IN 1 D)
     Route: 048
     Dates: end: 201604
  3. CELEBREX [Suspect]
     Active Substance: CELECOXIB
     Dosage: (2 IN 1 D)
     Route: 048
  4. PREDNISONE. [Suspect]
     Active Substance: PREDNISONE
     Dosage: 1.25 MG (2.5 MG, 1 IN 2 D)
     Dates: end: 20150904
  5. XELJANZ [Suspect]
     Active Substance: TOFACITINIB CITRATE
     Dosage: 10 MG, (5 MG, 2 IN 1 D)
     Route: 048
     Dates: start: 201604, end: 20160803
  6. CELEBREX [Suspect]
     Active Substance: CELECOXIB
     Indication: RHEUMATOID ARTHRITIS
     Dosage: 400 MG, (200 MG, 2 IN 1 D)
     Route: 065
  7. CELEBREX [Suspect]
     Active Substance: CELECOXIB
     Dosage: (1 IN 1 D)
     Route: 048
     Dates: start: 20160223
  8. CELEBREX [Suspect]
     Active Substance: CELECOXIB
     Dosage: 200 MG (200 MG,1 IN 1 D)
     Route: 048
     Dates: start: 20160328
  9. PLAQUENIL                          /00072602/ [Suspect]
     Active Substance: HYDROXYCHLOROQUINE DIPHOSPHATE
     Indication: RHEUMATOID ARTHRITIS
     Dosage: (200 MG, 1 D)
     Route: 065
     Dates: start: 20150220, end: 20151016
  10. XELJANZ [Suspect]
     Active Substance: TOFACITINIB CITRATE
     Indication: RHEUMATOID ARTHRITIS
     Dosage: 10 MG (5 MG,2 IN 1 D)
     Route: 048
     Dates: start: 20150716, end: 201512
  11. CELEBREX [Suspect]
     Active Substance: CELECOXIB
     Indication: PAIN
     Dosage: AS NECESSARY
     Route: 065
  12. CELEBREX [Suspect]
     Active Substance: CELECOXIB
     Dosage: (2 IN 1 D)
     Route: 048
  13. CELEBREX [Suspect]
     Active Substance: CELECOXIB
     Dosage: ONCE PER DAY AND EVENTUALLY AS NEEDED
     Route: 048
  14. CELEBREX [Suspect]
     Active Substance: CELECOXIB
     Dosage: 200 MG (200 MG,1 IN 1 D)
     Route: 048
     Dates: end: 20160327
  15. XELJANZ [Suspect]
     Active Substance: TOFACITINIB CITRATE
     Dosage: 10 MG (5 MG,2 IN 1 D)
     Route: 048
     Dates: start: 20160806, end: 20160808
  16. PREDNISONE. [Suspect]
     Active Substance: PREDNISONE
     Indication: RHEUMATOID ARTHRITIS
     Dosage: (2.5 MG, 1 D)

REACTIONS (6)
  - Constipation [Recovering/Resolving]
  - Wrist fracture [Unknown]
  - Abdominal pain upper [Recovering/Resolving]
  - Fall [Unknown]
  - Rheumatoid arthritis [Not Recovered/Not Resolved]
  - Viral upper respiratory tract infection [Not Recovered/Not Resolved]

NARRATIVE: CASE EVENT DATE: 2015
